FAERS Safety Report 17745034 (Version 2)
Quarter: 2020Q3

REPORT INFORMATION
  Report Type: Spontaneous
  Country: US (occurrence: US)
  Receive Date: 20200504
  Receipt Date: 20200810
  Transmission Date: 20201102
  Serious: Yes (Death)
  Sender: FDA-Public Use
  Company Number: US-ACTELION-A-US2020-204616

PATIENT
  Sex: Female
  Weight: 56.24 kg

DRUGS (6)
  1. FUROSEMIDE. [Concomitant]
     Active Substance: FUROSEMIDE
     Dosage: 10 MG, BID
     Route: 048
     Dates: start: 20191223, end: 20200417
  2. BRILINTA [Concomitant]
     Active Substance: TICAGRELOR
  3. ASA [Concomitant]
     Active Substance: ASPIRIN
     Dosage: 81 MG
  4. OPSUMIT [Suspect]
     Active Substance: MACITENTAN
     Indication: PULMONARY ARTERIAL HYPERTENSION
     Dosage: 10 MG, QD
     Route: 048
     Dates: start: 20180620, end: 20200417
  5. REVATIO [Concomitant]
     Active Substance: SILDENAFIL CITRATE
  6. PITAVASTATIN. [Concomitant]
     Active Substance: PITAVASTATIN CALCIUM
     Dosage: 1 MG, QD
     Route: 048
     Dates: end: 20200417

REACTIONS (3)
  - Dementia [Fatal]
  - Subdural haematoma [Fatal]
  - Hypophagia [Fatal]
